FAERS Safety Report 21538153 (Version 2)
Quarter: 2023Q1

REPORT INFORMATION
  Report Type: Report from Study
  Country: US (occurrence: US)
  Receive Date: 20221101
  Receipt Date: 20230325
  Transmission Date: 20230418
  Serious: No
  Sender: FDA-Public Use
  Company Number: US-NOVARTISTESTPH-NVSC2022US244123

PATIENT
  Age: 25 Year
  Sex: Female

DRUGS (6)
  1. VIJOICE [Suspect]
     Active Substance: ALPELISIB
     Indication: PIK3CA related overgrowth spectrum
     Dosage: 200 MG
     Route: 048
     Dates: start: 20210208
  2. VIJOICE [Suspect]
     Active Substance: ALPELISIB
     Dosage: 250 MG
     Route: 048
     Dates: start: 20210407
  3. VIJOICE [Suspect]
     Active Substance: ALPELISIB
     Dosage: 300 MG
     Route: 048
     Dates: start: 20210803
  4. ZOLEDRONIC ACID [Concomitant]
     Active Substance: ZOLEDRONIC ACID
     Indication: Bone disorder
     Dosage: 4 MG (2-4 MG)
     Route: 042
     Dates: start: 20190715, end: 20210803
  5. SIROLIMUS [Concomitant]
     Active Substance: SIROLIMUS
     Indication: Lymphatic disorder
     Dosage: 300/4 MG
     Route: 048
     Dates: start: 2012, end: 20210208
  6. SIROLIMUS [Concomitant]
     Active Substance: SIROLIMUS
     Indication: PIK3CA related overgrowth spectrum

REACTIONS (1)
  - Alopecia [Recovered/Resolved]

NARRATIVE: CASE EVENT DATE: 20210701
